FAERS Safety Report 7254995-1 (Version None)
Quarter: 2011Q1

REPORT INFORMATION
  Report Type: 
  Country: None (occurrence: None)
  Receive Date: 20110129
  Receipt Date: 20100208
  Transmission Date: 20110831
  Serious: No
  Sender: FDA-Public Use
  Company Number: US-ABBOTT-10P-163-0624839-00

PATIENT
  Sex: Male
  Weight: 83.99 kg

DRUGS (3)
  1. AZAPROPAZONE [Concomitant]
     Indication: PRODUCT USED FOR UNKNOWN INDICATION
  2. HUMIRA [Suspect]
     Indication: ARTHRITIS
     Route: 058
     Dates: start: 20091101, end: 20091230
  3. TRAMADOL HCL [Concomitant]
     Indication: PAIN

REACTIONS (2)
  - GAIT DISTURBANCE [None]
  - ARTHRALGIA [None]
